FAERS Safety Report 9018393 (Version 1)
Quarter: 2013Q1

REPORT INFORMATION
  Report Type: Spontaneous
  Country: US (occurrence: None)
  Receive Date: 20130111
  Receipt Date: 20130111
  Transmission Date: 20140127
  Serious: Yes (Hospitalization)
  Sender: FDA-Public Use
  Company Number: None

PATIENT
  Age: 89 Year
  Sex: Female
  Weight: 107 kg

DRUGS (12)
  1. ASA [Suspect]
     Indication: ATRIAL FIBRILLATION
     Dosage: 81MG DAILY PO
     Route: 048
  2. COUMADIN [Suspect]
     Dosage: 5 MG / 2.5 MG DAILY/ Q SATURDAY PO
     Route: 048
  3. HYOROCODONE/APAP [Concomitant]
  4. LASIX [Concomitant]
  5. VIT D [Concomitant]
  6. CITALOPRAM [Concomitant]
  7. ZOFRAN [Concomitant]
  8. TYLENOL [Concomitant]
  9. CHONDROITIN-GLUCOSAMINE [Concomitant]
  10. OMEGA 3 [Concomitant]
  11. TOPROL XL [Concomitant]
  12. AMLODIPINE [Concomitant]

REACTIONS (3)
  - Dieulafoy^s vascular malformation [None]
  - Gastric ulcer [None]
  - Anaemia [None]
